FAERS Safety Report 9761335 (Version 1)
Quarter: 2013Q4

REPORT INFORMATION
  Report Type: Spontaneous
  Country: US (occurrence: None)
  Receive Date: 20131017
  Receipt Date: 20131017
  Transmission Date: 20140711
  Serious: Yes (Death)
  Sender: FDA-Public Use
  Company Number: 20130074

PATIENT
  Sex: Male

DRUGS (3)
  1. SUBSYS [Suspect]
     Indication: CANCER PAIN
     Route: 060
  2. MORPHINE [Concomitant]
  3. HYDROCODONE [Concomitant]

REACTIONS (1)
  - Death [None]
